FAERS Safety Report 5242225-1 (Version None)
Quarter: 2007Q1

REPORT INFORMATION
  Report Type: 
  Country: None (occurrence: None)
  Receive Date: 20070212
  Receipt Date: 20070212
  Transmission Date: 20070707
  Serious: No
  Sender: FDA-Public Use
  Company Number: None

PATIENT
  Age: 42 Year
  Sex: Male

DRUGS (1)
  1. LISINOPRIL [Suspect]
     Indication: HYPERTENSION
     Dosage: 40MG DAILY

REACTIONS (1)
  - LIP SWELLING [None]
